FAERS Safety Report 8343324-8 (Version None)
Quarter: 2012Q2

REPORT INFORMATION
  Report Type: 
  Country: None (occurrence: None)
  Receive Date: 20120508
  Receipt Date: 20120503
  Transmission Date: 20120825
  Serious: Yes (Death, Other)
  Sender: FDA-Public Use
  Company Number: PHHY2012CH038146

PATIENT
  Age: 64 Year
  Sex: Male

DRUGS (4)
  1. DICLOFENAC [Suspect]
     Indication: SINUSITIS
     Route: 048
  2. AMOXICILLIN AND CLAVULANATE POTASSIUM [Concomitant]
  3. DIAZEPAM [Concomitant]
  4. FLUTICASONE FUROATE [Concomitant]

REACTIONS (10)
  - SPLENOMEGALY [None]
  - ABDOMINAL PAIN [None]
  - HAEMOLYTIC ANAEMIA [None]
  - NAUSEA [None]
  - INTRAVASCULAR HAEMOLYSIS [None]
  - LACTIC ACIDOSIS [None]
  - HYPOGLYCAEMIA [None]
  - ACUTE HEPATIC FAILURE [None]
  - BACK PAIN [None]
  - COLD SWEAT [None]
